FAERS Safety Report 10722641 (Version 2)
Quarter: 2015Q1

REPORT INFORMATION
  Report Type: Not Available
  Country: US (occurrence: US)
  Receive Date: 20150120
  Receipt Date: 20150129
  Transmission Date: 20150721
  Serious: No
  Sender: FDA-Public Use
  Company Number: US-LUPIN PHARMACEUTICALS INC.-E2B_00002966

PATIENT
  Age: 14 Year
  Sex: Male
  Weight: 33.6 kg

DRUGS (5)
  1. QUETIAPINE FUMARATE TABLETS 50 MG [Interacting]
     Active Substance: QUETIAPINE FUMARATE
     Indication: AGGRESSION
  2. OXCARBAZEPINE. [Interacting]
     Active Substance: OXCARBAZEPINE
     Indication: AUTISM
     Dosage: 10 ML
  3. QUETIAPINE FUMARATE TABLETS 50 MG [Suspect]
     Active Substance: QUETIAPINE FUMARATE
     Indication: AUTISM
     Dates: start: 20141206
  4. OXCARBAZEPINE. [Interacting]
     Active Substance: OXCARBAZEPINE
     Indication: AGGRESSION
  5. QUETIAPINE FUMARATE TABLETS 50 MG [Interacting]
     Active Substance: QUETIAPINE FUMARATE
     Indication: BIPOLAR DISORDER

REACTIONS (4)
  - Drug effect delayed [Unknown]
  - Drug effect decreased [Unknown]
  - Aggression [Unknown]
  - Drug interaction [Unknown]

NARRATIVE: CASE EVENT DATE: 201412
